FAERS Safety Report 4922870-0 (Version None)
Quarter: 2006Q1

REPORT INFORMATION
  Report Type: 
  Country: None (occurrence: None)
  Receive Date: 20060221
  Receipt Date: 20060202
  Transmission Date: 20060701
  Serious: Yes (Hospitalization)
  Sender: FDA-Public Use
  Company Number: 221904

PATIENT
  Age: 44 Year
  Sex: Female

DRUGS (4)
  1. AVASTIN [Suspect]
     Indication: COLON CANCER
     Dosage: 385 , Q3W, INTRAVENOUS
     Route: 042
     Dates: start: 20060110
  2. OXALIPLATIN(OXALIPLATIN) [Suspect]
     Indication: COLON CANCER
     Dosage: 200 MG, Q3W, INTRAVENOUS
     Route: 042
     Dates: start: 20060110
  3. CAPECITABINE(CAPECITABINE) [Suspect]
     Indication: COLON CANCER
     Dosage: 1150 , BID, ORAL
     Route: 048
     Dates: start: 20060110
  4. CALCIUM(CALCIUM NOS) [Suspect]
     Dosage: INTRAVENOUS
     Route: 042

REACTIONS (3)
  - ABDOMINAL PAIN [None]
  - HYPOCALCAEMIA [None]
  - HYPOKALAEMIA [None]
